FAERS Safety Report 5207521-2 (Version None)
Quarter: 2007Q1

REPORT INFORMATION
  Report Type: 
  Country: None (occurrence: None)
  Receive Date: 20070112
  Receipt Date: 20070108
  Transmission Date: 20070707
  Serious: Yes (Other)
  Sender: FDA-Public Use
  Company Number: GB-BOEHRINGER INGELHEIM PHARMACEUTICALS, INC.-2007-UK-00068UK

PATIENT
  Age: 7 Month

DRUGS (2)
  1. VIRAMUNE [Suspect]
     Route: 064
  2. COMBIVIR [Suspect]
     Route: 064

REACTIONS (1)
  - METHYLMALONIC ACIDURIA [None]
